FAERS Safety Report 15682930 (Version 1)
Quarter: 2018Q4

REPORT INFORMATION
  Report Type: Spontaneous
  Country: US (occurrence: US)
  Receive Date: 20181203
  Receipt Date: 20181203
  Transmission Date: 20190205
  Serious: No
  Sender: FDA-Public Use
  Company Number: US-BAYER-2018-223633

PATIENT
  Age: 78 Year
  Sex: Female
  Weight: 74 kg

DRUGS (7)
  1. LAXATIVE [BISACODYL] [Concomitant]
  2. BIOTIN [Concomitant]
     Active Substance: BIOTIN
  3. VITAMIN D3 [Concomitant]
     Active Substance: CHOLECALCIFEROL
  4. PREVAGEN [Concomitant]
     Active Substance: DIETARY SUPPLEMENT
  5. MIRALAX [Suspect]
     Active Substance: POLYETHYLENE GLYCOL 3350
     Indication: GASTROINTESTINAL DISORDER
     Dosage: ONE CAP SATURDAY AND ONE CAP SUNDAY
     Route: 048
     Dates: start: 20181101, end: 20181102
  6. FIBER SUPPLEMENT [Concomitant]
     Active Substance: DIETARY SUPPLEMENT
  7. VITAMIN D [Concomitant]
     Active Substance: CHOLECALCIFEROL

REACTIONS (2)
  - Diarrhoea [None]
  - Product packaging issue [None]

NARRATIVE: CASE EVENT DATE: 20181201
